FAERS Safety Report 7787651-1 (Version None)
Quarter: 2011Q3

REPORT INFORMATION
  Report Type: 
  Country: None (occurrence: None)
  Receive Date: 20110929
  Receipt Date: 20110920
  Transmission Date: 20111222
  Serious: Yes (Other)
  Sender: FDA-Public Use
  Company Number: US-ASTRAZENECA-2011SE56541

PATIENT
  Age: 87 Year
  Sex: Male

DRUGS (1)
  1. NEXIUM [Suspect]
     Indication: OESOPHAGEAL DISORDER
     Route: 048
     Dates: start: 20090101, end: 20100101

REACTIONS (2)
  - GASTRIC NEOPLASM [None]
  - MANTLE CELL LYMPHOMA [None]
